FAERS Safety Report 6344022-2 (Version None)
Quarter: 2009Q3

REPORT INFORMATION
  Report Type: 
  Country: None (occurrence: None)
  Receive Date: 20090908
  Receipt Date: 20090827
  Transmission Date: 20100115
  Serious: Yes (Hospitalization, Other)
  Sender: FDA-Public Use
  Company Number: JP-PFIZER INC-2009263272

PATIENT
  Age: 51 Year

DRUGS (1)
  1. VIAGRA [Suspect]
     Route: 048
     Dates: start: 20090821

REACTIONS (2)
  - APHASIA [None]
  - CEREBRAL HAEMORRHAGE [None]
